FAERS Safety Report 16658372 (Version 3)
Quarter: 2019Q3

REPORT INFORMATION
  Report Type: Spontaneous
  Country: TW (occurrence: TW)
  Receive Date: 20190801
  Receipt Date: 20190816
  Transmission Date: 20191004
  Serious: Yes (Hospitalization)
  Sender: FDA-Public Use
  Company Number: TW-ELI_LILLY_AND_COMPANY-TW201907015139

PATIENT
  Age: 85 Year
  Sex: Female

DRUGS (4)
  1. ERBITUX [Suspect]
     Active Substance: CETUXIMAB
     Indication: COLORECTAL CANCER METASTATIC
     Dosage: 600 MG, ONCE EVERY THREE WEEKS
     Route: 065
     Dates: start: 20190701
  2. CAMPTO [Concomitant]
     Active Substance: IRINOTECAN
     Indication: COLORECTAL CANCER METASTATIC
     Dosage: 180 MG, UNK
  3. 5 FU [Concomitant]
     Active Substance: FLUOROURACIL
     Indication: COLORECTAL CANCER METASTATIC
     Dosage: 2500 MG, UNK
  4. ERBITUX [Suspect]
     Active Substance: CETUXIMAB
     Dosage: 600 MG, ONCE EVERY THREE WEEKS
     Route: 065
     Dates: start: 201907

REACTIONS (2)
  - Blood creatine increased [Recovered/Resolved]
  - Off label use [Unknown]

NARRATIVE: CASE EVENT DATE: 201907
